FAERS Safety Report 24774690 (Version 1)
Quarter: 2024Q4

REPORT INFORMATION
  Report Type: Spontaneous
  Country: AU (occurrence: AU)
  Receive Date: 20241226
  Receipt Date: 20241226
  Transmission Date: 20250115
  Serious: Yes (Other)
  Sender: AMGEN
  Company Number: AU-AMGEN-AUSSP2024217452

PATIENT
  Age: 77 Year
  Sex: Male
  Weight: 60 kg

DRUGS (5)
  1. PROLIA [Suspect]
     Active Substance: DENOSUMAB
     Indication: Osteoporosis
     Dosage: 60 MILLIGRAM, Q6MO
     Route: 058
     Dates: start: 20150423
  2. CALTRATE WITH VITAMIN D [Concomitant]
     Active Substance: CALCIUM CARBONATE\CHOLECALCIFEROL
     Dosage: 600MG, 200IU, 2 TABLETS DAILY
  3. BETAMETHASONE DIPROPIONATE [Concomitant]
     Active Substance: BETAMETHASONE DIPROPIONATE
     Dosage: 0.05 PERCENT, DAILY
  4. LYRICA [Concomitant]
     Active Substance: PREGABALIN
     Dosage: 75 MILLIGRAM, QD
  5. NORSPAN [Concomitant]
     Active Substance: BUPRENORPHINE
     Dosage: 25 MICROGRAM/HR, QWK

REACTIONS (6)
  - Atypical femur fracture [Recovered/Resolved]
  - Periprosthetic fracture [Unknown]
  - Fall [Unknown]
  - Cataract [Unknown]
  - Lumbar radiculopathy [Unknown]
  - Surgical failure [Unknown]

NARRATIVE: CASE EVENT DATE: 20171004
